FAERS Safety Report 14876452 (Version 1)
Quarter: 2018Q2

REPORT INFORMATION
  Report Type: Spontaneous
  Country: FR (occurrence: FR)
  Receive Date: 20180510
  Receipt Date: 20180510
  Transmission Date: 20180711
  Serious: Yes (Other)
  Sender: FDA-Public Use
  Company Number: FR-ROCHE-2118592

PATIENT
  Age: 56 Year
  Sex: Male
  Weight: 99 kg

DRUGS (6)
  1. PEGASYS [Suspect]
     Active Substance: PEGINTERFERON ALFA-2A
     Indication: CHRONIC HEPATITIS C
     Dosage: MOST RECENT DOSE IN /JUN/2012
     Route: 058
     Dates: start: 20120105
  2. ZOLOFT [Concomitant]
     Active Substance: SERTRALINE HYDROCHLORIDE
     Route: 048
  3. NEORECORMON [Concomitant]
     Active Substance: ERYTHROPOIETIN
     Route: 040
  4. INCIVO [Suspect]
     Active Substance: TELAPREVIR
     Indication: CHRONIC HEPATITIS C
     Dosage: IN 29/MAR/2012, HE RECEIVED MOST RECENT DOSE OF TELAPREVIR.
     Route: 048
     Dates: start: 20120105
  5. COPEGUS [Suspect]
     Active Substance: RIBAVIRIN
     Indication: CHRONIC HEPATITIS C
     Dosage: MOST RECENT DOSE IN /JUN/2012
     Route: 048
     Dates: start: 20120105
  6. DERMOVAL (FRANCE) [Concomitant]
     Route: 003

REACTIONS (3)
  - Hepatitis C [Not Recovered/Not Resolved]
  - Hepatitis C RNA increased [Not Recovered/Not Resolved]
  - Drug ineffective [Unknown]

NARRATIVE: CASE EVENT DATE: 20121213
